FAERS Safety Report 4683878-6 (Version None)
Quarter: 2005Q2

REPORT INFORMATION
  Report Type: 
  Country: None (occurrence: None)
  Receive Date: 20050607
  Receipt Date: 20050307
  Transmission Date: 20051028
  Serious: Yes (Hospitalization)
  Sender: FDA-Public Use
  Company Number: US-ROCHE-397874

PATIENT
  Age: 60 Year
  Sex: Female
  Weight: 66.2 kg

DRUGS (12)
  1. VALIUM [Suspect]
     Indication: ANXIETY
     Route: 048
     Dates: start: 19950615, end: 19960615
  2. VALIUM [Suspect]
     Route: 048
     Dates: start: 20040915
  3. VALIUM [Suspect]
     Dosage: DOSE INCREASED.
     Route: 048
  4. VALIUM [Suspect]
     Dosage: DOSE DECREASED.
     Route: 048
     Dates: end: 20050313
  5. VALIUM [Suspect]
     Route: 048
     Dates: start: 20050314, end: 20050314
  6. VALIUM [Suspect]
     Dosage: 5 MG AM AND 5 MG PM.
     Route: 048
     Dates: start: 20050319
  7. PAXIL [Suspect]
     Indication: ANXIETY
     Route: 048
  8. ZOCOR [Concomitant]
     Route: 048
  9. VASOTEC [Concomitant]
     Route: 048
  10. INSULIN [Concomitant]
  11. INH [Concomitant]
     Indication: TUBERCULOSIS
     Route: 048
  12. UNSPECIFIED MEDICATION [Concomitant]
     Dosage: TRADE NAME REPORTED AS ARANASE.
     Route: 048

REACTIONS (6)
  - BLOOD CREATININE INCREASED [None]
  - BLOOD UREA INCREASED [None]
  - DEPENDENCE [None]
  - DYSARTHRIA [None]
  - LOSS OF CONSCIOUSNESS [None]
  - RENAL FAILURE [None]
